FAERS Safety Report 10737900 (Version 1)
Quarter: 2015Q1

REPORT INFORMATION
  Report Type: Spontaneous
  Country: US (occurrence: US)
  Receive Date: 20150126
  Receipt Date: 20150126
  Transmission Date: 20150721
  Serious: No
  Sender: FDA-Public Use
  Company Number: US-SA-2014SA089250

PATIENT
  Age: 97 Year
  Sex: Female
  Weight: 45.36 kg

DRUGS (2)
  1. CARDIAC THERAPY [Concomitant]
     Active Substance: UNSPECIFIED INGREDIENT
  2. LASIX [Suspect]
     Active Substance: FUROSEMIDE
     Indication: PRODUCT USED FOR UNKNOWN INDICATION
     Route: 065

REACTIONS (1)
  - Blood potassium decreased [Unknown]
